FAERS Safety Report 5315052-4 (Version None)
Quarter: 2007Q2

REPORT INFORMATION
  Report Type: 
  Country: None (occurrence: None)
  Receive Date: 20070502
  Receipt Date: 20070423
  Transmission Date: 20071010
  Serious: Yes (Other)
  Sender: FDA-Public Use
  Company Number: US-GENENTECH-240453

PATIENT
  Age: 55 Year
  Sex: Female

DRUGS (15)
  1. AVASTIN [Suspect]
     Indication: BREAST CANCER
     Dosage: 1000 MG, Q3W
     Route: 042
     Dates: start: 20060929
  2. TYLENOL [Concomitant]
     Indication: PREMEDICATION
  3. CIMETIDINE HCL [Concomitant]
     Indication: PREMEDICATION
  4. ABRAXANE [Concomitant]
     Indication: BREAST CANCER
     Dosage: 169 MG, DAY1+8/Q3W
     Route: 042
     Dates: start: 20060929
  5. AREDIA [Concomitant]
     Indication: BREAST CANCER
     Dosage: 90 MG, Q4W
     Route: 042
     Dates: start: 20061110
  6. NEUPOGEN [Concomitant]
     Indication: DRUG USE FOR UNKNOWN INDICATION
     Dosage: 400 MG, UNK
  7. BENADRYL [Concomitant]
     Indication: PREMEDICATION
  8. DECADRON [Concomitant]
     Indication: PREMEDICATION
  9. ZYRTEC [Concomitant]
     Indication: PREMEDICATION
     Dosage: 10 MG, UNK
     Route: 048
  10. ALOXI [Concomitant]
     Indication: PREMEDICATION
  11. NORMAL SALINE FLUSH [Concomitant]
     Indication: DRUG USE FOR UNKNOWN INDICATION
  12. NEULASTA [Concomitant]
     Indication: DRUG USE FOR UNKNOWN INDICATION
  13. ZOFRAN [Concomitant]
     Indication: PREMEDICATION
  14. ARANESP [Concomitant]
     Indication: DRUG USE FOR UNKNOWN INDICATION
  15. IRON DEXTRAN [Concomitant]
     Indication: ANAEMIA
     Dosage: 100 MG, UNK

REACTIONS (1)
  - HEPATIC CIRRHOSIS [None]
